FAERS Safety Report 8257114-8 (Version None)
Quarter: 2012Q2

REPORT INFORMATION
  Report Type: 
  Country: None (occurrence: None)
  Receive Date: 20120403
  Receipt Date: 20120330
  Transmission Date: 20120825
  Serious: Yes (Death)
  Sender: FDA-Public Use
  Company Number: NO-PFIZER INC-2012069358

PATIENT

DRUGS (2)
  1. LYRICA [Suspect]
  2. METHADON HCL TAB [Suspect]
     Dosage: UNK

REACTIONS (1)
  - DEATH [None]
